FAERS Safety Report 5193649-2 (Version None)
Quarter: 2006Q4

REPORT INFORMATION
  Report Type: 
  Country: None (occurrence: None)
  Receive Date: 20061218
  Receipt Date: 20061205
  Transmission Date: 20070319
  Serious: Yes (Other)
  Sender: FDA-Public Use
  Company Number: 200610406BBE

PATIENT
  Sex: Male

DRUGS (1)
  1. GAMUNEX [Suspect]
     Indication: NEUROPATHY PERIPHERAL

REACTIONS (1)
  - THROMBOSIS [None]
